FAERS Safety Report 18624645 (Version 1)
Quarter: 2020Q4

REPORT INFORMATION
  Report Type: Spontaneous
  Country: FR (occurrence: FR)
  Receive Date: 20201216
  Receipt Date: 20201216
  Transmission Date: 20210114
  Serious: Yes (Other)
  Sender: FDA-Public Use
  Company Number: FR-BAYER-2020-273450

PATIENT
  Sex: Female

DRUGS (2)
  1. MIRENA [Suspect]
     Active Substance: LEVONORGESTREL
     Dosage: 20?G PER DAY, CONTINUOUSLY
     Route: 015
  2. LUTENYL [Concomitant]
     Active Substance: NOMEGESTROL ACETATE

REACTIONS (5)
  - Pulmonary embolism [None]
  - Menorrhagia [None]
  - Breast swelling [None]
  - Vena cava thrombosis [None]
  - Abdominal pain upper [None]

NARRATIVE: CASE EVENT DATE: 201911
